FAERS Safety Report 21732647 (Version 1)
Quarter: 2022Q4

REPORT INFORMATION
  Report Type: Spontaneous
  Country: DE (occurrence: None)
  Receive Date: 20221215
  Receipt Date: 20221215
  Transmission Date: 20230112
  Serious: Yes (Life-Threatening)
  Sender: FDA-Public Use
  Company Number: DE-MICRO LABS LIMITED-ML2022-06190

PATIENT
  Age: 76 Year
  Sex: Male

DRUGS (2)
  1. APIXABAN [Suspect]
     Active Substance: APIXABAN
     Indication: Atrial fibrillation
     Dosage: 5 MG B.I.D
  2. APIXABAN [Suspect]
     Active Substance: APIXABAN
     Indication: Atrial thrombosis

REACTIONS (1)
  - Drug ineffective [Unknown]
